FAERS Safety Report 7032278-2 (Version None)
Quarter: 2010Q4

REPORT INFORMATION
  Report Type: 
  Country: None (occurrence: None)
  Receive Date: 20101007
  Receipt Date: 20100609
  Transmission Date: 20110411
  Serious: Yes (Death, Life-Threatening, Hospitalization, Other)
  Sender: FDA-Public Use
  Company Number: US-BRISTOL-MYERS SQUIBB COMPANY-15119746

PATIENT
  Age: 59 Year
  Sex: Male
  Weight: 95 kg

DRUGS (28)
  1. CETUXIMAB [Suspect]
     Indication: NON-SMALL CELL LUNG CANCER
     Dosage: WITHDRAWN FROM THE STUDY ON 20MAY10
     Route: 042
     Dates: start: 20100506, end: 20100513
  2. PACLITAXEL [Suspect]
     Indication: NON-SMALL CELL LUNG CANCER
     Dosage: WITHDRAWN FROM THE STUDY ON 20MAY10
     Route: 042
     Dates: start: 20100506, end: 20100506
  3. CARBOPLATIN [Suspect]
     Indication: NON-SMALL CELL LUNG CANCER
     Dosage: WITHDRAWN FROM THE STUDY ON 20MAY10
     Route: 042
     Dates: start: 20100506, end: 20100506
  4. ASTELIN [Concomitant]
     Route: 045
  5. ASPIRIN [Concomitant]
     Route: 048
  6. BENADRYL [Concomitant]
     Route: 048
  7. COMBIVENT [Concomitant]
     Dosage: 2 DF = 2 PUFF( 18MCG/103MCG)
     Route: 055
  8. COMPAZINE [Concomitant]
     Route: 048
  9. GABAPENTIN [Concomitant]
     Dosage: STRENGTH 600MG 2 DF = 2 TAB
     Route: 048
  10. HUMULIN 70/30 [Concomitant]
     Indication: DIABETES MELLITUS
     Dosage: 1 DF = 70/30 100UNIT/ML
     Route: 058
  11. HUMULIN R [Concomitant]
     Indication: DIABETES MELLITUS
     Dosage: 1 DF = 100UNIT/ML INJECTION
     Route: 058
  12. HYDROCORTISONE CREAM [Concomitant]
     Route: 061
  13. LISINOPRIL [Concomitant]
     Dosage: FREQ: 1 IN 1 ONCE
     Route: 048
  14. MAGNESIUM [Concomitant]
     Route: 048
  15. METOPROLOL TARTRATE [Concomitant]
     Route: 065
  16. NEXIUM [Concomitant]
     Dosage: 40MG CAPS 1 DF = 1 CAPS
     Route: 048
  17. NIACIN TABS [Concomitant]
     Dosage: 2 DF = 2 NIACIN TABS 1000MG
     Route: 048
  18. NITROGLYCERIN [Concomitant]
     Indication: CHEST PAIN
     Route: 048
  19. PREDNISONE [Concomitant]
     Dosage: ALSO TAKEN 1MG
     Route: 048
  20. SIMVASTATIN [Concomitant]
     Route: 048
  21. VENTOLIN [Concomitant]
     Route: 055
  22. XYLOCAINE [Concomitant]
     Dosage: OINTMENT
     Route: 061
  23. ZOLOFT [Concomitant]
     Route: 048
  24. PERCOCET [Concomitant]
     Indication: PAIN
     Route: 065
     Dates: start: 20100513
  25. NEURONTIN [Concomitant]
     Route: 065
     Dates: start: 20100513
  26. DURAGESIC-100 [Concomitant]
     Route: 061
     Dates: start: 20100513
  27. LEVOFLOXACIN [Concomitant]
  28. FLEXERIL [Concomitant]

REACTIONS (6)
  - CLOSTRIDIUM DIFFICILE COLITIS [None]
  - HYPOGLYCAEMIA [None]
  - HYPOTENSION [None]
  - HYPOXIA [None]
  - RESPIRATORY FAILURE [None]
  - THROMBOCYTOPENIA [None]
